FAERS Safety Report 8364007-4 (Version None)
Quarter: 2012Q1

REPORT INFORMATION
  Report Type: 
  Country: None (occurrence: None)
  Receive Date: 20120323
  Receipt Date: 20111222
  Transmission Date: 20120608
  Serious: Yes (Other)
  Sender: FDA-Public Use
  Company Number: 163-21880-11123402

PATIENT
  Age: 81 Year
  Sex: Male

DRUGS (5)
  1. COUMADIN [Concomitant]
  2. ATENOLOL [Concomitant]
  3. REVLIMID [Suspect]
     Indication: MULTIPLE MYELOMA
     Dosage: 25 MG, X21 CAPS, PO
     Route: 048
     Dates: start: 20091207
  4. NITROFURANTOIN MACROCYSTAL (NITROFURANTOIN) [Concomitant]
  5. ACYCLOVIR (ACICLOVER) [Concomitant]

REACTIONS (1)
  - CHOLECYSTITIS INFECTIVE [None]
